FAERS Safety Report 9787811 (Version 4)
Quarter: 2014Q1

REPORT INFORMATION
  Report Type: Spontaneous
  Country: US (occurrence: US)
  Receive Date: 20131230
  Receipt Date: 20140319
  Transmission Date: 20141002
  Serious: No
  Sender: FDA-Public Use
  Company Number: US-PFIZER INC-2013367402

PATIENT
  Age: 64 Year
  Sex: Male

DRUGS (2)
  1. INLYTA [Suspect]
     Indication: METASTATIC RENAL CELL CARCINOMA
     Dosage: 5 MG, 2X/DAY
     Dates: start: 20131021
  2. INLYTA [Suspect]
     Dosage: 5 MG, UNK
     Dates: start: 20131017

REACTIONS (8)
  - Decreased appetite [Unknown]
  - Glossodynia [Unknown]
  - Arthralgia [Unknown]
  - Fatigue [Unknown]
  - Tachycardia [Unknown]
  - Glossodynia [Unknown]
  - Nausea [Unknown]
  - Lip pain [Unknown]
